FAERS Safety Report 10996723 (Version 3)
Quarter: 2015Q3

REPORT INFORMATION
  Report Type: Report from Study
  Country: US (occurrence: US)
  Receive Date: 20150408
  Receipt Date: 20150722
  Transmission Date: 20151125
  Serious: Yes (Hospitalization)
  Sender: FDA-Public Use
  Company Number: US-BIOGENIDEC-2015BI043667

PATIENT
  Age: 39 Year
  Sex: Male

DRUGS (4)
  1. TECFIDERA [Suspect]
     Active Substance: DIMETHYL FUMARATE
     Indication: PROGRESSIVE RELAPSING MULTIPLE SCLEROSIS
     Route: 048
     Dates: start: 2014
  2. TECFIDERA [Suspect]
     Active Substance: DIMETHYL FUMARATE
     Indication: PROGRESSIVE RELAPSING MULTIPLE SCLEROSIS
     Route: 048
     Dates: start: 2013
  3. TECFIDERA [Suspect]
     Active Substance: DIMETHYL FUMARATE
     Indication: PROGRESSIVE RELAPSING MULTIPLE SCLEROSIS
  4. COCAINE [Concomitant]
     Active Substance: COCAINE

REACTIONS (6)
  - Multiple sclerosis relapse [Recovered/Resolved]
  - Flushing [Not Recovered/Not Resolved]
  - Progressive relapsing multiple sclerosis [Unknown]
  - Seizure [Recovered/Resolved]
  - Intentional product use issue [Unknown]
  - Prescribed underdose [Not Recovered/Not Resolved]

NARRATIVE: CASE EVENT DATE: 20150318
